FAERS Safety Report 19675929 (Version 5)
Quarter: 2021Q4

REPORT INFORMATION
  Report Type: Spontaneous
  Country: US (occurrence: US)
  Receive Date: 20210809
  Receipt Date: 20211027
  Transmission Date: 20220303
  Serious: No
  Sender: FDA-Public Use
  Company Number: US-VERTEX PHARMACEUTICALS-2021-011677

PATIENT
  Age: 7 Year
  Sex: Female

DRUGS (1)
  1. TRIKAFTA [Suspect]
     Active Substance: ELEXACAFTOR\IVACAFTOR\TEZACAFTOR
     Indication: Cystic fibrosis
     Dosage: FULL DOSE (50 MG  ELEXA/ 25 MG TEZA/ 37.5 MG IVA  AND 75 MG IVA)
     Route: 048
     Dates: start: 20210629, end: 20210708

REACTIONS (4)
  - Swelling face [Recovered/Resolved]
  - Photosensitivity reaction [Unknown]
  - Lip swelling [Unknown]
  - Drug eruption [Recovered/Resolved]

NARRATIVE: CASE EVENT DATE: 20210706
